FAERS Safety Report 18985872 (Version 3)
Quarter: 2021Q4

REPORT INFORMATION
  Report Type: Spontaneous
  Country: US (occurrence: US)
  Receive Date: 20210309
  Receipt Date: 20211004
  Transmission Date: 20220303
  Serious: Yes (Other)
  Sender: FDA-Public Use
  Company Number: US-TEVA-2021-US-1887701

PATIENT
  Age: 74 Year
  Sex: Male

DRUGS (6)
  1. OLANZAPINE [Suspect]
     Active Substance: OLANZAPINE
     Indication: Psychotic disorder
     Dosage: 10 MILLIGRAM DAILY;
     Route: 065
     Dates: start: 2005
  2. OLANZAPINE [Suspect]
     Active Substance: OLANZAPINE
     Indication: Major depression
  3. CLONAZEPAM [Suspect]
     Active Substance: CLONAZEPAM
     Indication: Affective disorder
     Dosage: .5 MILLIGRAM DAILY;
     Route: 065
     Dates: start: 2005
  4. CLONAZEPAM [Suspect]
     Active Substance: CLONAZEPAM
     Indication: Major depression
  5. DULOXETINE [Suspect]
     Active Substance: DULOXETINE
     Indication: Affective disorder
     Dosage: 60 MILLIGRAM DAILY;
     Route: 065
     Dates: start: 2005
  6. DULOXETINE [Suspect]
     Active Substance: DULOXETINE
     Indication: Major depression

REACTIONS (2)
  - Dysphagia [Unknown]
  - Parkinsonism [Unknown]
